FAERS Safety Report 5706252-X (Version None)
Quarter: 2008Q2

REPORT INFORMATION
  Report Type: 
  Country: None (occurrence: None)
  Receive Date: 20080415
  Receipt Date: 20080408
  Transmission Date: 20081010
  Serious: Yes (Other)
  Sender: FDA-Public Use
  Company Number: US-BOEHRINGER INGELHEIM GMBH, GERMANY-2008-DE-02107GD

PATIENT
  Sex: Female

DRUGS (3)
  1. ASPIRIN [Suspect]
     Indication: CARDIOVASCULAR EVENT PROPHYLAXIS
     Dosage: LOW-DOSE
  2. NAPROXEN [Suspect]
     Indication: OSTEOARTHRITIS
     Route: 048
  3. LANSOPRAZOLE [Suspect]
     Indication: PROPHYLAXIS AGAINST GASTROINTESTINAL ULCER
     Route: 048

REACTIONS (2)
  - DIARRHOEA HAEMORRHAGIC [None]
  - ENTEROCOLITIS HAEMORRHAGIC [None]
